FAERS Safety Report 18140797 (Version 5)
Quarter: 2025Q4

REPORT INFORMATION
  Report Type: Spontaneous
  Country: US (occurrence: US)
  Receive Date: 20200812
  Receipt Date: 20251214
  Transmission Date: 20260117
  Serious: No
  Sender: PFIZER
  Company Number: US-PFIZER INC-2020309481

PATIENT
  Age: 58 Year
  Sex: Female

DRUGS (4)
  1. XELJANZ [Suspect]
     Active Substance: TOFACITINIB CITRATE
     Dosage: 5 MG
  2. XELJANZ [Suspect]
     Active Substance: TOFACITINIB CITRATE
     Dosage: 10 MG (HALF TABLET BY MOUTH 2 TIMES A DAY)
     Route: 048
     Dates: start: 20250630
  3. XELJANZ [Suspect]
     Active Substance: TOFACITINIB CITRATE
     Dosage: 10 MG (HALF TABLET BY MOUTH 2 TIMES A DAY)
     Route: 048
     Dates: start: 20250916
  4. XELJANZ [Suspect]
     Active Substance: TOFACITINIB CITRATE
     Dosage: 5 MG, 2X/DAY (HALF OF 10 MG TAB)
     Route: 048
     Dates: start: 20251030

REACTIONS (3)
  - Pain [Unknown]
  - Joint swelling [Unknown]
  - Product dose omission issue [Unknown]
